FAERS Safety Report 8294228-0 (Version None)
Quarter: 2012Q2

REPORT INFORMATION
  Report Type: 
  Country: None (occurrence: None)
  Receive Date: 20120418
  Receipt Date: 20120416
  Transmission Date: 20120825
  Serious: Yes (Hospitalization, Other)
  Sender: FDA-Public Use
  Company Number: PHEH2009US09836

PATIENT
  Sex: Male

DRUGS (16)
  1. AMBIEN [Concomitant]
  2. MIRAPEX [Concomitant]
  3. VITAMIN E [Concomitant]
  4. SINEMET [Concomitant]
  5. ZOFRAN [Concomitant]
  6. ANZEMET [Concomitant]
  7. TYLENOL (CAPLET) [Concomitant]
  8. DIOVAN [Concomitant]
  9. ULTRAM [Concomitant]
  10. PRAMIPEXOLE DIHYDROCHLORIDE [Concomitant]
  11. ZOMETA [Suspect]
     Route: 042
     Dates: end: 20070801
  12. VASOTEC [Concomitant]
  13. ASCORBIC ACID [Concomitant]
  14. CIPROFLOXACIN [Concomitant]
  15. PAXIL [Concomitant]
  16. CLONIDINE [Concomitant]

REACTIONS (51)
  - FALL [None]
  - BONE DISORDER [None]
  - URINARY TRACT INFECTION [None]
  - BLOOD URINE PRESENT [None]
  - DYSPNOEA [None]
  - TREMOR [None]
  - BENIGN PROSTATIC HYPERPLASIA [None]
  - NOCTURIA [None]
  - URINARY TRACT OBSTRUCTION [None]
  - PAIN [None]
  - HALLUCINATION [None]
  - CYSTITIS HAEMORRHAGIC [None]
  - HYPERTENSION [None]
  - OSTEONECROSIS OF JAW [None]
  - DECREASED INTEREST [None]
  - CHEST PAIN [None]
  - NEPHROLITHIASIS [None]
  - SINUS BRADYCARDIA [None]
  - AMNESIA [None]
  - DEPRESSION [None]
  - INJURY [None]
  - CATARACT [None]
  - THROMBOCYTOPENIA [None]
  - HYPERTONIC BLADDER [None]
  - HIATUS HERNIA [None]
  - FISTULA [None]
  - LUNG HYPERINFLATION [None]
  - SOMNOLENCE [None]
  - DRY EYE [None]
  - PARKINSON'S DISEASE [None]
  - OSTEOPOROSIS [None]
  - DEAFNESS [None]
  - PAIN IN EXTREMITY [None]
  - EYE DISORDER [None]
  - GENERAL PHYSICAL HEALTH DETERIORATION [None]
  - AORTIC DISORDER [None]
  - ACTINIC KERATOSIS [None]
  - HYPERTENSIVE CRISIS [None]
  - CARDIOMEGALY [None]
  - POLLAKIURIA [None]
  - CONFUSIONAL STATE [None]
  - INSOMNIA [None]
  - RENAL CYST [None]
  - PLEURAL FIBROSIS [None]
  - TOOTH LOSS [None]
  - ANXIETY [None]
  - OSTEOPENIA [None]
  - LENTIGO [None]
  - CONSTIPATION [None]
  - NERVOUSNESS [None]
  - MACULAR DEGENERATION [None]
